FAERS Safety Report 19381691 (Version 1)
Quarter: 2021Q2

REPORT INFORMATION
  Report Type: Spontaneous
  Country: IN (occurrence: IN)
  Receive Date: 20210607
  Receipt Date: 20210607
  Transmission Date: 20210717
  Serious: Yes (Other)
  Sender: FDA-Public Use
  Company Number: IN-TORRENT-00002833

PATIENT
  Age: 56 Year
  Sex: Male

DRUGS (1)
  1. AMLODIPINE [Suspect]
     Active Substance: AMLODIPINE BESYLATE
     Indication: ESSENTIAL HYPERTENSION
     Dosage: TOOK AMLODIPINE TABLETS ON AND OFF IN THE LAST 2 MONTHS

REACTIONS (2)
  - Post inflammatory pigmentation change [Not Recovered/Not Resolved]
  - Generalised bullous fixed drug eruption [Recovered/Resolved with Sequelae]
